FAERS Safety Report 10644672 (Version 1)
Quarter: 2014Q4

REPORT INFORMATION
  Report Type: Report from Study
  Country: IN (occurrence: IN)
  Receive Date: 20141210
  Receipt Date: 20141210
  Transmission Date: 20150529
  Serious: Yes (Death)
  Sender: FDA-Public Use
  Company Number: IN-ROCHE-1505809

PATIENT
  Age: 46 Year
  Sex: Male

DRUGS (5)
  1. NICARDIA [Concomitant]
     Route: 048
     Dates: start: 20140726
  2. ARKAMINE [Concomitant]
     Route: 048
     Dates: start: 20140726
  3. EXXURA [Suspect]
     Active Substance: PEGINTERFERON ALFA-2A
     Indication: HEPATITIS C
     Route: 058
     Dates: start: 20140801, end: 20141004
  4. SEVCAR [Concomitant]
     Route: 065
  5. MINIPRESS [Concomitant]
     Active Substance: PRAZOSIN HYDROCHLORIDE
     Route: 048
     Dates: start: 20140726

REACTIONS (1)
  - Respiratory disorder [Fatal]

NARRATIVE: CASE EVENT DATE: 20141009
